FAERS Safety Report 18929481 (Version 1)
Quarter: 2021Q1

REPORT INFORMATION
  Report Type: Spontaneous
  Country: US (occurrence: US)
  Receive Date: 20210223
  Receipt Date: 20210223
  Transmission Date: 20210420
  Serious: No
  Sender: FDA-Public Use
  Company Number: US-ROCHE-2713314

PATIENT
  Sex: Male

DRUGS (8)
  1. NUTROPIN [Suspect]
     Active Substance: SOMATROPIN
     Route: 058
  2. NUTROPIN [Suspect]
     Active Substance: SOMATROPIN
     Indication: PRODUCT USED FOR UNKNOWN INDICATION
     Route: 058
     Dates: start: 20200928
  3. NUTROPIN [Suspect]
     Active Substance: SOMATROPIN
  4. NUTROPIN [Suspect]
     Active Substance: SOMATROPIN
     Route: 058
  5. NUTROPIN [Suspect]
     Active Substance: SOMATROPIN
  6. NUTROPIN [Suspect]
     Active Substance: SOMATROPIN
  7. NUTROPIN [Suspect]
     Active Substance: SOMATROPIN
     Route: 058
  8. NUTROPIN [Suspect]
     Active Substance: SOMATROPIN

REACTIONS (1)
  - Headache [Recovered/Resolved]
